FAERS Safety Report 7897333-3 (Version None)
Quarter: 2011Q4

REPORT INFORMATION
  Report Type: 
  Country: None (occurrence: None)
  Receive Date: 20111107
  Receipt Date: 20111103
  Transmission Date: 20120403
  Serious: No
  Sender: FDA-Public Use
  Company Number: US-TEVA-307779USA

PATIENT
  Sex: Female
  Weight: 73.094 kg

DRUGS (4)
  1. LEVOTHYROXINE SODIUM [Concomitant]
  2. SIMVASTATIN [Concomitant]
  3. PROAIR HFA [Suspect]
     Dosage: 60 MILLIGRAM;
     Route: 058
     Dates: start: 20111026
  4. PAROXETINE HCL [Concomitant]

REACTIONS (1)
  - HEADACHE [None]
